FAERS Safety Report 7389391-X (Version None)
Quarter: 2011Q2

REPORT INFORMATION
  Report Type: 
  Country: None (occurrence: None)
  Receive Date: 20110401
  Receipt Date: 20110322
  Transmission Date: 20111010
  Serious: Yes (Hospitalization, Other)
  Sender: FDA-Public Use
  Company Number: US-PFIZER INC-2011054093

PATIENT
  Sex: Male

DRUGS (3)
  1. BENICAR [Suspect]
     Dosage: UNK
     Route: 048
     Dates: start: 20110226, end: 20110226
  2. BENICAR [Suspect]
     Indication: HYPERTENSION
     Dosage: UNK
     Route: 048
     Dates: start: 20090101, end: 20100101
  3. BACTRIM DS [Suspect]
     Indication: STAPHYLOCOCCAL INFECTION
     Dosage: 1 DF, 2X/DAY
     Route: 048
     Dates: start: 20110223, end: 20110228

REACTIONS (5)
  - BODY TEMPERATURE INCREASED [None]
  - STAPHYLOCOCCAL INFECTION [None]
  - HEART RATE INCREASED [None]
  - SWOLLEN TONGUE [None]
  - VISUAL IMPAIRMENT [None]
